FAERS Safety Report 10182843 (Version 1)
Quarter: 2014Q2

REPORT INFORMATION
  Report Type: Spontaneous
  Country: PL (occurrence: PL)
  Receive Date: 20140520
  Receipt Date: 20140520
  Transmission Date: 20141212
  Serious: Yes (Other)
  Sender: FDA-Public Use
  Company Number: PL-WATSON-2014-09859

PATIENT
  Age: 40 Year
  Sex: Male
  Weight: 78 kg

DRUGS (2)
  1. LEVOXA [Suspect]
     Indication: PROSTATITIS
     Dosage: 500 MG, DAILY
     Route: 048
     Dates: start: 20131224, end: 20131225
  2. IBUPROM [Concomitant]
     Indication: PRODUCT USED FOR UNKNOWN INDICATION
     Dosage: UNK, 3 X 200 MG
     Route: 065

REACTIONS (9)
  - Psychotic disorder [Recovered/Resolved]
  - Paraesthesia [Recovered/Resolved]
  - Hypothermia [Recovered/Resolved]
  - Arthralgia [Recovered/Resolved]
  - Dizziness [Recovered/Resolved]
  - Stupor [Recovered/Resolved]
  - Speech disorder [Recovered/Resolved]
  - Reflexes abnormal [Recovered/Resolved]
  - Dyspnoea [Recovered/Resolved]
